FAERS Safety Report 12412753 (Version 2)
Quarter: 2016Q2

REPORT INFORMATION
  Report Type: Spontaneous
  Country: US (occurrence: US)
  Receive Date: 20160527
  Receipt Date: 20160614
  Transmission Date: 20160815
  Serious: No
  Sender: FDA-Public Use
  Company Number: US-PFIZER INC-2016256240

PATIENT
  Sex: Female

DRUGS (1)
  1. DUAVEE [Suspect]
     Active Substance: BAZEDOXIFENE ACETATE\ESTROGENS, CONJUGATED
     Dosage: UNK

REACTIONS (1)
  - Drug effect incomplete [Unknown]
